FAERS Safety Report 7465353-9 (Version None)
Quarter: 2011Q2

REPORT INFORMATION
  Report Type: 
  Country: None (occurrence: None)
  Receive Date: 20110509
  Receipt Date: 20110504
  Transmission Date: 20111010
  Serious: Yes (Life-Threatening, Hospitalization, Other)
  Sender: FDA-Public Use
  Company Number: DE-BRISTOL-MYERS SQUIBB COMPANY-14923551

PATIENT
  Age: 66 Year
  Sex: Male
  Weight: 66 kg

DRUGS (3)
  1. FLUOROURACIL [Suspect]
     Indication: HEAD AND NECK CANCER
     Dosage: CONTINUOUS INFUSION FROM DAY 1 TO DAY 4 OF CYCLE; RECENT INF 21DEC09 (8TH INF).
     Route: 042
     Dates: start: 20091126, end: 20091221
  2. CISPLATIN [Suspect]
     Indication: HEAD AND NECK CANCER
     Dosage: RECENT INF 18DEC09 (2ND INF).
     Route: 042
     Dates: start: 20091126, end: 20091218
  3. ERBITUX [Suspect]
     Indication: HEAD AND NECK CANCER
     Dosage: CETUXIMAB 5MG/ML; RECENT INF 24DEC09 (5TH INF).
     Route: 042
     Dates: start: 20091126, end: 20091224

REACTIONS (4)
  - ADRENAL INSUFFICIENCY [None]
  - ASTHENIA [None]
  - PNEUMONIA [None]
  - HYPOXIA [None]
